FAERS Safety Report 9096943 (Version 1)
Quarter: 2013Q1

REPORT INFORMATION
  Report Type: Spontaneous
  Country: US (occurrence: None)
  Receive Date: 20130125
  Receipt Date: 20130125
  Transmission Date: 20140127
  Serious: Yes (Other)
  Sender: FDA-Public Use
  Company Number: E2B_00000561

PATIENT
  Sex: Female

DRUGS (1)
  1. LEVETIRACETAM [Suspect]
     Indication: EPILEPSY
     Dosage: 250 MG IN THE MORNING AND 500 MG IN THE EVENING (2 IN 1 D)
     Route: 048
     Dates: start: 201110

REACTIONS (3)
  - Vulvovaginal dryness [None]
  - Urinary tract infection [None]
  - Urinary retention [None]
